FAERS Safety Report 6007131-3 (Version None)
Quarter: 2008Q4

REPORT INFORMATION
  Report Type: 
  Country: None (occurrence: None)
  Receive Date: 20081217
  Receipt Date: 20080125
  Transmission Date: 20090506
  Serious: No
  Sender: FDA-Public Use
  Company Number: US-ASTRAZENECA-2008UW01822

PATIENT
  Age: 74 Year
  Sex: Female

DRUGS (3)
  1. CRESTOR [Suspect]
     Route: 048
     Dates: start: 20080119
  2. LOPRESSOR [Concomitant]
     Dates: start: 20071101
  3. ASPIRIN [Concomitant]

REACTIONS (1)
  - MUSCULOSKELETAL PAIN [None]
